FAERS Safety Report 4297170-5 (Version None)
Quarter: 2004Q1

REPORT INFORMATION
  Report Type: 
  Country: None (occurrence: None)
  Receive Date: 20040213
  Receipt Date: 20040202
  Transmission Date: 20041129
  Serious: Yes (Death, Hospitalization)
  Sender: FDA-Public Use
  Company Number: 2004006830

PATIENT
  Age: 10 Year
  Sex: Male

DRUGS (6)
  1. VORICONAZOLE (VORICONAZOLE) [Suspect]
     Indication: ILL-DEFINED DISORDER
  2. CASPOFUNGIN (CASPOFUNGIN) [Suspect]
     Indication: ILL-DEFINED DISORDER
     Dosage: 50 MG (DAILY)
  3. DACLIXIMAB (DACLIZUMAB) [Concomitant]
  4. AMPHOTERICIN B [Concomitant]
  5. INFLIXIMAB (INFLIXIMAB) [Concomitant]
  6. CORTICOSTEROIDS [Concomitant]

REACTIONS (9)
  - CARDIAC INFECTION [None]
  - DRUG INTERACTION POTENTIATION [None]
  - FUNGAL INFECTION [None]
  - FUNGAL SKIN INFECTION [None]
  - GENERAL PHYSICAL HEALTH DETERIORATION [None]
  - KIDNEY INFECTION [None]
  - LOWER RESPIRATORY TRACT INFECTION [None]
  - LUNG INFECTION [None]
  - SKIN LESION [None]
